FAERS Safety Report 9671915 (Version 2)
Quarter: 2013Q4

REPORT INFORMATION
  Report Type: Spontaneous
  Country: US (occurrence: US)
  Receive Date: 20131106
  Receipt Date: 20131227
  Transmission Date: 20140711
  Serious: Yes (Other)
  Sender: FDA-Public Use
  Company Number: US-TEVA-442670USA

PATIENT
  Age: 39 Year
  Sex: Female
  Weight: 56.3 kg

DRUGS (1)
  1. PARAGARD 380A [Suspect]
     Indication: CONTRACEPTION
     Route: 015
     Dates: start: 20121022, end: 20131021

REACTIONS (1)
  - Device dislocation [Recovered/Resolved]
